FAERS Safety Report 7292626-5 (Version None)
Quarter: 2011Q1

REPORT INFORMATION
  Report Type: 
  Country: None (occurrence: None)
  Receive Date: 20110215
  Receipt Date: 20110208
  Transmission Date: 20110831
  Serious: Yes (Other)
  Sender: FDA-Public Use
  Company Number: US-JNJFOC-20110203031

PATIENT
  Sex: Female
  Weight: 77.11 kg

DRUGS (8)
  1. PERCOCET [Concomitant]
     Indication: BREAKTHROUGH PAIN
     Route: 048
  2. FENTANYL TRANSDERMAL SYSTEM [Suspect]
     Indication: PAIN
     Route: 062
  3. LEVOXYL [Concomitant]
     Indication: HYPOTHYROIDISM
     Route: 048
  4. VALIUM [Concomitant]
     Indication: MUSCLE SPASMS
     Route: 048
  5. NEXIUM [Concomitant]
     Indication: GASTRIC DISORDER
     Route: 048
  6. TYLENOL [Concomitant]
     Indication: PAIN
     Route: 048
  7. DURAGESIC-50 [Suspect]
     Indication: PAIN
     Dosage: 100 PLUS 25 UG/HR PATCH1 IN 48 HOURS
     Route: 062
  8. CLONAZEPAM [Concomitant]
     Indication: INSOMNIA
     Dosage: 1 AT NIGHT
     Route: 048

REACTIONS (6)
  - DRUG DISPENSING ERROR [None]
  - HYPERTENSION [None]
  - APPLICATION SITE PRURITUS [None]
  - APPLICATION SITE REACTION [None]
  - EXPIRED DRUG ADMINISTERED [None]
  - DEPRESSION [None]
